FAERS Safety Report 11866802 (Version 1)
Quarter: 2015Q4

REPORT INFORMATION
  Report Type: Spontaneous
  Country: GB (occurrence: GB)
  Receive Date: 20151224
  Receipt Date: 20151224
  Transmission Date: 20160305
  Serious: Yes (Disabling)
  Sender: FDA-Public Use
  Company Number: GB-AUROBINDO-AUR-APL-2015-11727

PATIENT
  Sex: Female

DRUGS (2)
  1. AMOXICILLIN CAPSULES 500MG [Suspect]
     Active Substance: AMOXICILLIN
     Indication: GINGIVITIS
     Dosage: 500 MG, UNK
     Route: 048
  2. METRONIDAZOLE. [Suspect]
     Active Substance: METRONIDAZOLE
     Indication: PRODUCT USED FOR UNKNOWN INDICATION
     Route: 065

REACTIONS (8)
  - Fatigue [Unknown]
  - Headache [Unknown]
  - Menstruation delayed [Unknown]
  - Premenstrual syndrome [Unknown]
  - Abdominal distension [Unknown]
  - Depression [Unknown]
  - Abdominal pain [Unknown]
  - Irritability [Unknown]
